FAERS Safety Report 14518410 (Version 6)
Quarter: 2018Q3

REPORT INFORMATION
  Report Type: Spontaneous
  Country: FR (occurrence: FR)
  Receive Date: 20180212
  Receipt Date: 20180730
  Transmission Date: 20181010
  Serious: Yes (Other)
  Sender: FDA-Public Use
  Company Number: FR-TEVA-2018-FR-855007

PATIENT
  Age: 86 Year
  Sex: Female
  Weight: 48 kg

DRUGS (10)
  1. OXYNORM 20 MG, [Concomitant]
     Route: 048
     Dates: start: 201702, end: 20171124
  2. PERINDOPRIL [Concomitant]
     Active Substance: PERINDOPRIL
     Indication: PRODUCT USED FOR UNKNOWN INDICATION
     Dosage: 4 MILLIGRAM DAILY;
     Route: 048
     Dates: start: 20171107
  3. TRAMADOL (CHLORHYDRATE DE) [Concomitant]
     Active Substance: TRAMADOL HYDROCHLORIDE
     Indication: PRODUCT USED FOR UNKNOWN INDICATION
     Dosage: 1 ? 4/J
     Route: 048
     Dates: start: 20161208
  4. BISOPROLOL (HEMIFUMARATE DE) [Concomitant]
     Active Substance: BISOPROLOL FUMARATE
     Indication: PRODUCT USED FOR UNKNOWN INDICATION
     Dosage: 1.25 MILLIGRAM DAILY;
     Route: 048
     Dates: start: 20161129
  5. FENTANYL. [Suspect]
     Active Substance: FENTANYL
     Route: 062
     Dates: start: 20171124
  6. ZYRTEC [Suspect]
     Active Substance: CETIRIZINE HYDROCHLORIDE
     Indication: PRODUCT USED FOR UNKNOWN INDICATION
     Dosage: 10 MILLIGRAM DAILY;
     Route: 048
     Dates: start: 20141124, end: 20171116
  7. OXYNORM 20 MG, [Concomitant]
     Indication: PRODUCT USED FOR UNKNOWN INDICATION
     Dosage: 2 DOSAGE FORMS DAILY;
     Route: 048
     Dates: start: 20160808
  8. INDAPAMIDE. [Concomitant]
     Active Substance: INDAPAMIDE
     Indication: PRODUCT USED FOR UNKNOWN INDICATION
     Route: 048
     Dates: start: 20171107
  9. KARDEGIC [Concomitant]
     Active Substance: ASPIRIN DL-LYSINE
     Indication: PRODUCT USED FOR UNKNOWN INDICATION
     Dosage: 1 DOSAGE FORMS DAILY;
     Route: 048
     Dates: start: 20160728
  10. CALCIDOSE VITAMINE D, POUDRE ORALE EN SACHET?DOSE [Concomitant]
     Active Substance: CALCIUM\CHOLECALCIFEROL
     Indication: PRODUCT USED FOR UNKNOWN INDICATION
     Dosage: 2 DOSAGE FORMS DAILY;
     Route: 048
     Dates: start: 20140322

REACTIONS (1)
  - Protrusion tongue [Recovering/Resolving]

NARRATIVE: CASE EVENT DATE: 20171115
